FAERS Safety Report 21668929 (Version 1)
Quarter: 2022Q4

REPORT INFORMATION
  Report Type: Spontaneous
  Country: GB (occurrence: GB)
  Receive Date: 20221201
  Receipt Date: 20221201
  Transmission Date: 20230113
  Serious: Yes (Disabling, Other)
  Sender: FDA-Public Use
  Company Number: None

PATIENT

DRUGS (3)
  1. PREDNISOLONE [Suspect]
     Active Substance: PREDNISOLONE
     Dosage: UNK
  2. CLOBETASOL [Suspect]
     Active Substance: CLOBETASOL
     Indication: Rash
     Dosage: UNK UNK, BID(APPLY TO AFFECTED AREAS USING FINGERTIP UNIT GUIDES TWICE A DAY )
     Dates: end: 20220109
  3. CLOBETASOL [Suspect]
     Active Substance: CLOBETASOL
     Indication: Eczema

REACTIONS (13)
  - Dyshidrotic eczema [Unknown]
  - Pain of skin [Unknown]
  - Burning sensation [Unknown]
  - Skin exfoliation [Unknown]
  - Swelling face [Unknown]
  - Skin fissures [Unknown]
  - Skin exfoliation [Unknown]
  - Skin weeping [Unknown]
  - Topical steroid withdrawal reaction [Recovering/Resolving]
  - Pruritus [Unknown]
  - Rash [Unknown]
  - Erythema [Unknown]
  - Medication error [Unknown]

NARRATIVE: CASE EVENT DATE: 20200101
